FAERS Safety Report 8144483-2 (Version None)
Quarter: 2012Q1

REPORT INFORMATION
  Report Type: 
  Country: None (occurrence: None)
  Receive Date: 20120217
  Receipt Date: 20120210
  Transmission Date: 20120608
  Serious: Yes (Hospitalization)
  Sender: FDA-Public Use
  Company Number: US-VERTEX PHARMACEUTICALS INC.-AE-2012-002221

PATIENT
  Sex: Male
  Weight: 88.53 kg

DRUGS (3)
  1. INCIVEK [Suspect]
     Indication: HEPATITIS C
     Route: 048
     Dates: start: 20111125
  2. PEGASYS [Concomitant]
     Indication: HEPATITIS C
     Route: 058
     Dates: start: 20111125
  3. RIBASPHERE [Concomitant]
     Indication: HEPATITIS C
     Route: 048
     Dates: start: 20111125

REACTIONS (7)
  - PYREXIA [None]
  - DIARRHOEA [None]
  - DECREASED APPETITE [None]
  - STAPHYLOCOCCAL INFECTION [None]
  - INFLUENZA LIKE ILLNESS [None]
  - RASH [None]
  - HAEMORRHOIDS [None]
